FAERS Safety Report 23684108 (Version 2)
Quarter: 2024Q4

REPORT INFORMATION
  Report Type: Spontaneous
  Country: CA (occurrence: CA)
  Receive Date: 20240328
  Receipt Date: 20241220
  Transmission Date: 20250115
  Serious: Yes (Death, Other)
  Sender: PFIZER
  Company Number: CA-PFIZER INC-202300283429

PATIENT
  Age: 73 Year
  Sex: Male

DRUGS (5)
  1. VYNDAQEL [Suspect]
     Active Substance: TAFAMIDIS MEGLUMINE
     Indication: Cardiac amyloidosis
     Dosage: 80 MG, 1X/DAY
     Route: 048
     Dates: start: 20230627
  2. CARVEDILOL [Concomitant]
     Active Substance: CARVEDILOL
     Dosage: 1 DF
  3. FUROSEMIDE [Concomitant]
     Active Substance: FUROSEMIDE
     Dosage: 1 DF
  4. ROSUVASTATIN [Concomitant]
     Active Substance: ROSUVASTATIN
     Dosage: 1 DF
  5. SACUBITRIL [Concomitant]
     Active Substance: SACUBITRIL
     Dosage: 1 DF

REACTIONS (5)
  - Death [Fatal]
  - Cardiac failure chronic [Unknown]
  - Condition aggravated [Unknown]
  - Heart rate increased [Not Recovered/Not Resolved]
  - Cardiac disorder [Unknown]

NARRATIVE: CASE EVENT DATE: 20240116
